FAERS Safety Report 19632729 (Version 14)
Quarter: 2023Q2

REPORT INFORMATION
  Report Type: Report from Study
  Country: US (occurrence: US)
  Receive Date: 20210728
  Receipt Date: 20230613
  Transmission Date: 20230722
  Serious: No
  Sender: FDA-Public Use
  Company Number: NVSC2021US152878

PATIENT
  Age: 42 Year
  Sex: Female

DRUGS (4)
  1. KESIMPTA [Suspect]
     Active Substance: OFATUMUMAB
     Indication: Relapsing multiple sclerosis
     Dosage: UNK, QMO
     Route: 058
     Dates: start: 20210711
  2. KESIMPTA [Suspect]
     Active Substance: OFATUMUMAB
     Indication: Relapsing-remitting multiple sclerosis
     Dosage: 20 MG, QMO
     Route: 058
  3. KESIMPTA [Suspect]
     Active Substance: OFATUMUMAB
     Indication: Clinically isolated syndrome
  4. KESIMPTA [Suspect]
     Active Substance: OFATUMUMAB
     Indication: Secondary progressive multiple sclerosis

REACTIONS (14)
  - Pain in extremity [Unknown]
  - Gait disturbance [Unknown]
  - Temperature intolerance [Unknown]
  - Myalgia [Unknown]
  - Pain [Unknown]
  - Herpes zoster [Unknown]
  - Fatigue [Unknown]
  - Central nervous system lesion [Unknown]
  - Vomiting [Not Recovered/Not Resolved]
  - Bladder disorder [Not Recovered/Not Resolved]
  - Device malfunction [Unknown]
  - Device defective [Unknown]
  - Inappropriate schedule of product administration [Unknown]
  - Accidental exposure to product [Unknown]

NARRATIVE: CASE EVENT DATE: 20210711
